FAERS Safety Report 22788221 (Version 5)
Quarter: 2024Q4

REPORT INFORMATION
  Report Type: Spontaneous
  Country: US (occurrence: US)
  Receive Date: 20230804
  Receipt Date: 20241004
  Transmission Date: 20250115
  Serious: Yes (Hospitalization, Other)
  Sender: ELI LILLY AND CO
  Company Number: US-ELI_LILLY_AND_COMPANY-US202308002265

PATIENT
  Age: 59 Year
  Sex: Female

DRUGS (7)
  1. TRULICITY [Suspect]
     Active Substance: DULAGLUTIDE
     Indication: Swelling
     Dosage: 0.75 MG, UNKNOWN
     Route: 065
  2. TRULICITY [Suspect]
     Active Substance: DULAGLUTIDE
     Indication: Swelling
     Dosage: 0.75 MG, UNKNOWN
     Route: 065
  3. TRULICITY [Suspect]
     Active Substance: DULAGLUTIDE
     Indication: Weight control
     Dosage: 0.75 MG, UNKNOWN
     Route: 065
     Dates: start: 2021
  4. TRULICITY [Suspect]
     Active Substance: DULAGLUTIDE
     Indication: Weight control
     Dosage: 0.75 MG, UNKNOWN
     Route: 065
     Dates: start: 2021
  5. TRULICITY [Suspect]
     Active Substance: DULAGLUTIDE
     Indication: Inflammation
  6. TRULICITY [Suspect]
     Active Substance: DULAGLUTIDE
     Indication: Inflammation
  7. TRULICITY [Suspect]
     Active Substance: DULAGLUTIDE
     Indication: Inflammation

REACTIONS (8)
  - Chronic myeloid leukaemia [Unknown]
  - Eye haemorrhage [Recovering/Resolving]
  - Injection site haemorrhage [Unknown]
  - Accidental underdose [Unknown]
  - Inappropriate schedule of product administration [Unknown]
  - Off label use [Unknown]
  - Weight increased [Unknown]
  - Intentional dose omission [Unknown]

NARRATIVE: CASE EVENT DATE: 20230701
